FAERS Safety Report 7344877-9 (Version None)
Quarter: 2011Q1

REPORT INFORMATION
  Report Type: 
  Country: None (occurrence: None)
  Receive Date: 20110308
  Receipt Date: 20110308
  Transmission Date: 20110831
  Serious: Yes (Other)
  Sender: FDA-Public Use
  Company Number: None

PATIENT
  Age: 58 Year
  Sex: Female
  Weight: 68.2 kg

DRUGS (1)
  1. NATURE'S BLEND VITAMIN D3 [Suspect]
     Indication: VITAMIN D DEFICIENCY
     Dosage: 1000 IU CHOLECALCIFEROL DAILY BY MOUTH
     Route: 048
     Dates: start: 20110124, end: 20110125

REACTIONS (3)
  - URTICARIA [None]
  - HYPERSENSITIVITY [None]
  - BURNING SENSATION [None]
